FAERS Safety Report 4839213-3 (Version None)
Quarter: 2005Q4

REPORT INFORMATION
  Report Type: 
  Country: None (occurrence: None)
  Receive Date: 20051025
  Receipt Date: 20050728
  Transmission Date: 20060501
  Serious: Yes (Hospitalization)
  Sender: FDA-Public Use
  Company Number: HQWYE665502AUG05

PATIENT
  Sex: Male

DRUGS (1)
  1. RAPAMUNE [Suspect]

REACTIONS (1)
  - BLOOD CREATININE INCREASED [None]
